FAERS Safety Report 9232870 (Version 1)
Quarter: 2013Q2

REPORT INFORMATION
  Report Type: Spontaneous
  Country: AZ (occurrence: AZ)
  Receive Date: 20130416
  Receipt Date: 20130416
  Transmission Date: 20140414
  Serious: Yes (Death, Hospitalization)
  Sender: FDA-Public Use
  Company Number: AZ-VERTEX PHARMACEUTICALS INC.-2013-004907

PATIENT
  Sex: Male

DRUGS (10)
  1. INCIVO [Suspect]
     Indication: HEPATITIS C
     Route: 048
  2. COPEGUS [Suspect]
     Indication: HEPATITIS C
     Dosage: DOSAGE FORM: UNKNOWN
     Route: 065
  3. PEGASYS [Suspect]
     Indication: HEPATITIS C
     Dosage: DOSAGE FORM: UNKNOWN
     Route: 065
  4. REVOLADE [Concomitant]
     Indication: PLATELET COUNT
     Dosage: DOSAGE FORM: TABLET
     Route: 065
  5. AMOXICILLIN W/CLARITHROMYCIN/LANSOPRAZOLE [Concomitant]
     Indication: VARICES OESOPHAGEAL
     Dosage: DOSAGE FORM: TABLET, 2X3 FOR 14 DAYS
  6. AMOXICILLIN W/CLARITHROMYCIN/LANSOPRAZOLE [Concomitant]
     Indication: GASTRITIS EROSIVE
     Dosage: DOSAGE FORM: TABLET, 2X3 FOR 14 DAYS
  7. LANSOR [Concomitant]
     Indication: VARICES OESOPHAGEAL
     Dosage: 1X1
  8. LANSOR [Concomitant]
     Indication: GASTRITIS EROSIVE
  9. DIDERAL [Concomitant]
     Indication: VARICES OESOPHAGEAL
     Dosage: DOSAGE FORM: TABLETS, 2X 1/2 TABLETS
  10. DIDERAL [Concomitant]
     Indication: GASTRITIS EROSIVE

REACTIONS (5)
  - Bronchopneumonia [Fatal]
  - Septic shock [Fatal]
  - Systemic inflammatory response syndrome [Unknown]
  - Off label use [Unknown]
  - Pruritus [Not Recovered/Not Resolved]
